FAERS Safety Report 12916976 (Version 1)
Quarter: 2016Q4

REPORT INFORMATION
  Report Type: Spontaneous
  Country: IT (occurrence: IT)
  Receive Date: 20161107
  Receipt Date: 20161107
  Transmission Date: 20170207
  Serious: Yes (Hospitalization, Other)
  Sender: FDA-Public Use
  Company Number: IT-TEVA-708761ISR

PATIENT
  Age: 45 Year
  Sex: Male

DRUGS (4)
  1. VINFLUNINE [Interacting]
     Active Substance: VINFLUNINE
     Indication: TRANSITIONAL CELL CARCINOMA
     Dosage: 280 MG/M2
     Route: 065
     Dates: start: 20150227
  2. VINFLUNINE [Interacting]
     Active Substance: VINFLUNINE
     Dosage: 200 MG/M2
     Route: 065
     Dates: start: 20150227
  3. VINFLUNINE [Interacting]
     Active Substance: VINFLUNINE
     Dosage: 220 MG/M2
     Route: 065
     Dates: start: 20150227
  4. CICLOSPORIN [Suspect]
     Active Substance: CYCLOSPORINE
     Indication: IMMUNOSUPPRESSANT DRUG THERAPY
     Dosage: 125 MILLIGRAM DAILY;
     Route: 065

REACTIONS (9)
  - Diarrhoea [Unknown]
  - Neutropenia [Unknown]
  - Thrombocytopenia [Unknown]
  - Transaminases increased [Unknown]
  - Nausea [Unknown]
  - Decreased appetite [Unknown]
  - Gastroenteritis [Unknown]
  - Stomatitis [Unknown]
  - Drug interaction [Unknown]
